FAERS Safety Report 8817997 (Version 1)
Quarter: 2012Q4

REPORT INFORMATION
  Report Type: 
  Country: TR (occurrence: TR)
  Receive Date: 20121001
  Receipt Date: 20121001
  Transmission Date: 20130627
  Serious: Yes (Other)
  Sender: FDA-Public Use
  Company Number: TR-ACTELION-A-CH2012-71983

PATIENT
  Age: 19 Year
  Sex: Female

DRUGS (1)
  1. ZAVESCA [Suspect]
     Indication: GAUCHER^S DISEASE
     Dosage: UNK
     Route: 048

REACTIONS (3)
  - Cholelithiasis [Unknown]
  - Abdominal pain upper [Unknown]
  - Cholecystectomy [Unknown]
